FAERS Safety Report 6889632-9 (Version None)
Quarter: 2010Q3

REPORT INFORMATION
  Report Type: 
  Country: None (occurrence: None)
  Receive Date: 20100730
  Receipt Date: 20080326
  Transmission Date: 20110219
  Serious: No
  Sender: FDA-Public Use
  Company Number: US-PFIZER INC-2008016868

PATIENT
  Age: 50 Year
  Sex: Male
  Weight: 74.39 kg

DRUGS (3)
  1. LIPITOR [Suspect]
     Dates: start: 20070101
  2. REGLAN [Concomitant]
  3. ACIPHEX [Concomitant]

REACTIONS (3)
  - DRUG INTOLERANCE [None]
  - MYALGIA [None]
  - WRONG TECHNIQUE IN DRUG USAGE PROCESS [None]
